FAERS Safety Report 23947997 (Version 1)
Quarter: 2024Q2

REPORT INFORMATION
  Report Type: Spontaneous
  Country: IT (occurrence: IT)
  Receive Date: 20240607
  Receipt Date: 20240607
  Transmission Date: 20240716
  Serious: Yes (Hospitalization)
  Sender: FDA-Public Use
  Company Number: None

PATIENT
  Age: 51 Year
  Sex: Female

DRUGS (6)
  1. VECTIBIX [Suspect]
     Active Substance: PANITUMUMAB
     Indication: Colon cancer
     Dosage: 356.46 MILLIGRAM
     Route: 065
     Dates: start: 20240507, end: 20240507
  2. FLUOROURACIL [Suspect]
     Active Substance: FLUOROURACIL
     Indication: Colon cancer
     Dosage: 2772 MILLIGRAM
     Route: 040
     Dates: start: 20240507, end: 20240507
  3. FLUOROURACIL [Suspect]
     Active Substance: FLUOROURACIL
     Dosage: 462 MILLIGRAM
     Route: 065
     Dates: start: 20240507, end: 20240507
  4. OXALIPLATIN [Suspect]
     Active Substance: OXALIPLATIN
     Indication: Colon cancer
     Dosage: 112.2 MILLIGRAM
     Route: 065
     Dates: start: 20240507, end: 20240507
  5. ENALAPRIL MALEATE [Concomitant]
     Active Substance: ENALAPRIL MALEATE
     Indication: Product used for unknown indication
     Dosage: UNK
     Route: 065
  6. SODIUM LEVULINATE [Concomitant]
     Active Substance: SODIUM LEVULINATE
     Indication: Product used for unknown indication
     Dosage: UNK
     Route: 065

REACTIONS (1)
  - Hypertransaminasaemia [Recovering/Resolving]

NARRATIVE: CASE EVENT DATE: 20240523
